APPROVED DRUG PRODUCT: FELODIPINE
Active Ingredient: FELODIPINE
Strength: 2.5MG
Dosage Form/Route: TABLET, EXTENDED RELEASE;ORAL
Application: A202170 | Product #001 | TE Code: AB
Applicant: TORRENT PHARMACEUTICALS LTD
Approved: Nov 28, 2011 | RLD: No | RS: No | Type: RX